FAERS Safety Report 13592393 (Version 2)
Quarter: 2017Q3

REPORT INFORMATION
  Report Type: Spontaneous
  Country: US (occurrence: US)
  Receive Date: 20170530
  Receipt Date: 20170707
  Transmission Date: 20171127
  Serious: Yes (Hospitalization)
  Sender: FDA-Public Use
  Company Number: US-PFIZER INC-2017234496

PATIENT
  Age: 79 Year
  Sex: Female
  Weight: 48 kg

DRUGS (1)
  1. TIKOSYN [Suspect]
     Active Substance: DOFETILIDE
     Dosage: TAKES IT EVERY 12 HOURS
     Dates: start: 201003

REACTIONS (5)
  - Abdominal pain upper [Unknown]
  - Body height decreased [Unknown]
  - Angina pectoris [Unknown]
  - Weight decreased [Unknown]
  - Dyspnoea [Unknown]
